FAERS Safety Report 5317989-9 (Version None)
Quarter: 2007Q2

REPORT INFORMATION
  Report Type: 
  Country: None (occurrence: None)
  Receive Date: 20070504
  Receipt Date: 20070504
  Transmission Date: 20071010
  Serious: Yes (Other)
  Sender: FDA-Public Use
  Company Number: None

PATIENT
  Age: 57 Year
  Sex: Male
  Weight: 92.0802 kg

DRUGS (5)
  1. FOSINOPRIL SODIUM [Suspect]
     Indication: BLOOD CREATININE INCREASED
     Dosage: 10 MG DAILY PO
     Route: 048
  2. FOSINOPRIL SODIUM [Suspect]
     Indication: HYPERTENSION
     Dosage: 10 MG DAILY PO
     Route: 048
  3. FOSINOPRIL SODIUM [Suspect]
     Indication: RENAL DISORDER
     Dosage: 10 MG DAILY PO
     Route: 048
  4. TACROLIMUS [Suspect]
     Indication: LIVER TRANSPLANT
     Dosage: 1 MG BID PO
     Route: 048
  5. NIFEDIPINE [Suspect]
     Dosage: 120 MG DAILY

REACTIONS (2)
  - HYPERKALAEMIA [None]
  - HYPOTENSION [None]
